FAERS Safety Report 20107666 (Version 1)
Quarter: 2021Q4

REPORT INFORMATION
  Report Type: Spontaneous
  Country: US (occurrence: None)
  Receive Date: 20211124
  Receipt Date: 20211124
  Transmission Date: 20220303
  Serious: Yes (Death)
  Sender: FDA-Public Use
  Company Number: None

PATIENT
  Sex: Male
  Weight: 84 kg

DRUGS (1)
  1. CYTARABINE [Suspect]
     Active Substance: CYTARABINE
     Dates: end: 20211030

REACTIONS (5)
  - Haemorrhage intracranial [None]
  - Brain compression [None]
  - Subarachnoid haemorrhage [None]
  - Brain herniation [None]
  - Thrombocytopenia [None]

NARRATIVE: CASE EVENT DATE: 20211108
